FAERS Safety Report 4559037-4 (Version None)
Quarter: 2005Q1

REPORT INFORMATION
  Report Type: 
  Country: None (occurrence: None)
  Receive Date: 20050124
  Receipt Date: 20050111
  Transmission Date: 20050727
  Serious: Yes (Death)
  Sender: FDA-Public Use
  Company Number: GB-JNJFOC-20041204543

PATIENT
  Age: 44 Year
  Sex: Male
  Weight: 70.1 kg

DRUGS (4)
  1. REMICADE [Suspect]
     Indication: CROHN'S DISEASE
     Route: 042
  2. ASACOL [Concomitant]
     Indication: CROHN'S DISEASE
     Route: 049
  3. AZATHIOPRINE [Concomitant]
     Indication: CROHN'S DISEASE
     Route: 049
  4. PREDNISOLONE [Concomitant]
     Indication: CROHN'S DISEASE
     Dosage: 10 - 20MG OD
     Route: 049

REACTIONS (2)
  - DISSEMINATED TUBERCULOSIS [None]
  - LOWER RESPIRATORY TRACT INFECTION [None]
